FAERS Safety Report 4440617-1 (Version None)
Quarter: 2004Q3

REPORT INFORMATION
  Report Type: 
  Country: None (occurrence: None)
  Receive Date: 20040901
  Receipt Date: 20040901
  Transmission Date: 20050211
  Serious: Yes (Hospitalization)
  Sender: FDA-Public Use
  Company Number: None

PATIENT
  Sex: Male
  Weight: 74.8435 kg

DRUGS (3)
  1. PAXIL [Suspect]
     Indication: ANXIETY
     Dosage: 20 MG PO QD [STARTED 2 DAYS PRIOR TO THE ER VISIT]
     Route: 048
  2. PAXIL [Suspect]
     Indication: DEPRESSION
     Dosage: 20 MG PO QD [STARTED 2 DAYS PRIOR TO THE ER VISIT]
     Route: 048
  3. HYDROCORTISONE CREAM [Concomitant]

REACTIONS (1)
  - TREMOR [None]
